FAERS Safety Report 6498606-1 (Version None)
Quarter: 2009Q4

REPORT INFORMATION
  Report Type: 
  Country: None (occurrence: None)
  Receive Date: 20091215
  Receipt Date: 20091207
  Transmission Date: 20100525
  Serious: Yes (Other)
  Sender: FDA-Public Use
  Company Number: US-ASTRAZENECA-2009SE30480

PATIENT
  Age: 89 Year
  Sex: Female

DRUGS (3)
  1. PULMICORT FLEXHALER [Suspect]
     Indication: ASTHMA
     Route: 055
     Dates: start: 20060101
  2. NEXIUM [Concomitant]
     Route: 048
  3. ESTRACE [Concomitant]
     Route: 067

REACTIONS (1)
  - CATARACT OPERATION [None]
